FAERS Safety Report 7018600-1 (Version None)
Quarter: 2010Q3

REPORT INFORMATION
  Report Type: 
  Country: None (occurrence: None)
  Receive Date: 20100922
  Receipt Date: 20100915
  Transmission Date: 20110219
  Serious: Yes (Death, Life-Threatening, Hospitalization, Other)
  Sender: FDA-Public Use
  Company Number: 2010EU003713

PATIENT
  Age: 53 Year
  Sex: Male
  Weight: 70 kg

DRUGS (16)
  1. MYCAMINE [Suspect]
     Indication: CANDIDA SEPSIS
     Dosage: 100 MG, UID/QD, IV NOS
     Route: 042
     Dates: start: 20100525, end: 20100610
  2. FLUCYTOSINE (FLUCYTOSINE) [Concomitant]
  3. CLAVENTIN (TICARCILLIN DISODIUM) [Concomitant]
  4. VITAMIN K (VITAMIN K NOS) [Concomitant]
  5. TICAR [Concomitant]
  6. CEFTAZIDIME SODIUM [Concomitant]
  7. PRIMAXIN [Concomitant]
  8. BUMETANIDE [Concomitant]
  9. PANTOPRAZOLE SODIUM [Concomitant]
  10. MIDAZOLAM HCL [Concomitant]
  11. TRACRIUM [Concomitant]
  12. SUFENTA PRESERVATIVE FREE [Concomitant]
  13. DIPRIVAN [Concomitant]
  14. NUTRISON (CARBOHYDRATES NOS, LIPIDS NOS, PROTEINS NOS) [Concomitant]
  15. STRUCTOKABIVEN (ALANINE) [Concomitant]
  16. ALBUMIN (HUMAN) [Concomitant]

REACTIONS (6)
  - BLOOD POTASSIUM DECREASED [None]
  - DRUG INEFFECTIVE [None]
  - HEPATIC FAILURE [None]
  - MULTI-ORGAN FAILURE [None]
  - RENAL FAILURE [None]
  - SEPTIC SHOCK [None]
